FAERS Safety Report 10785693 (Version 1)
Quarter: 2015Q1

REPORT INFORMATION
  Report Type: Spontaneous
  Country: US (occurrence: None)
  Receive Date: 20150209
  Receipt Date: 20150209
  Transmission Date: 20150721
  Serious: Yes (Other)
  Sender: FDA-Public Use
  Company Number: 2015COR00023

PATIENT
  Age: 28 Year
  Sex: Male

DRUGS (2)
  1. ALCOHOL (ETHANOL) [Concomitant]
     Active Substance: ALCOHOL
  2. ALPRAZOLAM. [Suspect]
     Active Substance: ALPRAZOLAM
     Route: 048

REACTIONS (10)
  - Dysarthria [None]
  - Agitation [None]
  - Splenic haemorrhage [None]
  - Hypertension [None]
  - Mental disorder [None]
  - Confusional state [None]
  - Alcohol withdrawal syndrome [None]
  - Tachycardia [None]
  - Restlessness [None]
  - Drug withdrawal syndrome [None]
